FAERS Safety Report 18705075 (Version 1)
Quarter: 2021Q1

REPORT INFORMATION
  Report Type: Spontaneous
  Country: FR (occurrence: FR)
  Receive Date: 20210106
  Receipt Date: 20210106
  Transmission Date: 20210419
  Serious: Yes (Other)
  Sender: FDA-Public Use
  Company Number: FR-AMGEN-FRASP2020213407

PATIENT
  Age: 58 Year
  Sex: Male
  Weight: 65 kg

DRUGS (2)
  1. IRINOTECAN ACCORD [Suspect]
     Active Substance: IRINOTECAN
     Indication: PRODUCT USED FOR UNKNOWN INDICATION
     Dosage: 360 MILLIGRAM
     Route: 041
     Dates: start: 20200219, end: 20200219
  2. VECTIBIX [Suspect]
     Active Substance: PANITUMUMAB
     Indication: ENDOMETRIAL STROMAL SARCOMA
     Dosage: 560 MILLIGRAM
     Route: 041
     Dates: start: 20200219, end: 20200219

REACTIONS (3)
  - Acute kidney injury [Not Recovered/Not Resolved]
  - Haemolytic anaemia [Not Recovered/Not Resolved]
  - Thrombocytopenia [Not Recovered/Not Resolved]

NARRATIVE: CASE EVENT DATE: 20200221
